FAERS Safety Report 19270143 (Version 1)
Quarter: 2021Q2

REPORT INFORMATION
  Report Type: Spontaneous
  Country: US (occurrence: US)
  Receive Date: 20210518
  Receipt Date: 20210518
  Transmission Date: 20210717
  Serious: Yes (Other)
  Sender: FDA-Public Use
  Company Number: US-GLAXOSMITHKLINE-USCH2021027703

PATIENT
  Age: 81 Year
  Sex: Male

DRUGS (1)
  1. BIOTENE GENTLE MINT (SODIUM FLUORIDE) [Suspect]
     Active Substance: SODIUM FLUORIDE
     Indication: PRODUCT USED FOR UNKNOWN INDICATION
     Dosage: UNK
     Dates: start: 20210509, end: 20210509

REACTIONS (2)
  - Burn oral cavity [Unknown]
  - Burning mouth syndrome [Unknown]

NARRATIVE: CASE EVENT DATE: 20210509
